FAERS Safety Report 5556999-3 (Version None)
Quarter: 2007Q4

REPORT INFORMATION
  Report Type: 
  Country: None (occurrence: None)
  Receive Date: 20071214
  Receipt Date: 20070919
  Transmission Date: 20080405
  Serious: No
  Sender: FDA-Public Use
  Company Number: US-AMGEN-KDL244175

PATIENT
  Sex: Female

DRUGS (2)
  1. ENBREL [Suspect]
     Indication: ANKYLOSING SPONDYLITIS
     Route: 058
     Dates: start: 20070715
  2. METHOTREXATE [Concomitant]
     Dates: start: 20070201

REACTIONS (3)
  - FALL [None]
  - IMPAIRED HEALING [None]
  - ULNA FRACTURE [None]
